FAERS Safety Report 5040710-9 (Version None)
Quarter: 2006Q2

REPORT INFORMATION
  Report Type: 
  Country: None (occurrence: None)
  Receive Date: 20060630
  Receipt Date: 20060630
  Transmission Date: 20061013
  Serious: Yes (Hospitalization)
  Sender: FDA-Public Use
  Company Number: None

PATIENT
  Age: 18 Year
  Sex: Male
  Weight: 66.2252 kg

DRUGS (1)
  1. DORYX [Suspect]
     Indication: ACNE CYSTIC
     Dosage: ONE -TAB PO BID
     Route: 048
     Dates: start: 20060515, end: 20060619

REACTIONS (6)
  - CHEST PAIN [None]
  - DYSPNOEA [None]
  - ODYNOPHAGIA [None]
  - OESOPHAGEAL ULCER [None]
  - ORAL INTAKE REDUCED [None]
  - WEIGHT DECREASED [None]
